FAERS Safety Report 15477077 (Version 1)
Quarter: 2018Q4

REPORT INFORMATION
  Report Type: Report from Study
  Country: GB (occurrence: GB)
  Receive Date: 20181009
  Receipt Date: 20181009
  Transmission Date: 20190205
  Serious: Yes (Other)
  Sender: FDA-Public Use
  Company Number: GB-ORION CORPORATION ORION PHARMA-18_00004621

PATIENT
  Age: 64 Year
  Sex: Female

DRUGS (4)
  1. METHOTREXATE (TRADE NAME UNKNOWN) [Suspect]
     Active Substance: METHOTREXATE
     Indication: RHEUMATOID ARTHRITIS
     Dosage: 15 MG, WEEK
     Route: 048
     Dates: start: 2001
  2. ABATACEPT [Suspect]
     Active Substance: ABATACEPT
     Indication: RHEUMATOID ARTHRITIS
     Dosage: 125 MG, QWK
     Route: 058
     Dates: start: 201602
  3. ADCAL [Concomitant]
     Active Substance: CALCIUM CARBONATE
     Indication: SUPPLEMENTATION THERAPY
     Dosage: STRENGTH: 750/200 UNIT NOS; 2 DF, DAILY
     Route: 048
     Dates: start: 2013
  4. FOLIC ACID. [Concomitant]
     Active Substance: FOLIC ACID
     Indication: RHEUMATOID ARTHRITIS
     Dosage: 5 MG, DAILY
     Route: 048
     Dates: start: 2001

REACTIONS (12)
  - Drug ineffective [Unknown]
  - Product dose omission [Unknown]
  - Peripheral swelling [Unknown]
  - Hypoaesthesia [Recovering/Resolving]
  - Lower respiratory tract infection [Unknown]
  - Fatigue [Unknown]
  - Arthralgia [Unknown]
  - Rash [Recovering/Resolving]
  - Product storage error [Unknown]
  - Nasopharyngitis [Unknown]
  - Paraesthesia [Recovering/Resolving]
  - Nodule [Unknown]

NARRATIVE: CASE EVENT DATE: 20161206
